FAERS Safety Report 6289644-2 (Version None)
Quarter: 2009Q3

REPORT INFORMATION
  Report Type: 
  Country: None (occurrence: None)
  Receive Date: 20090730
  Receipt Date: 20010530
  Transmission Date: 20100115
  Serious: No
  Sender: FDA-Public Use
  Company Number: 2001COU0909

PATIENT
  Sex: Female

DRUGS (1)
  1. COUMADIN [Suspect]
     Indication: VENOUS THROMBOSIS
     Dosage: UNK UNK
     Route: 048
     Dates: start: 20000901

REACTIONS (1)
  - PREGNANCY [None]
